FAERS Safety Report 4643357-9 (Version None)
Quarter: 2005Q2

REPORT INFORMATION
  Report Type: 
  Country: None (occurrence: None)
  Receive Date: 20050422
  Receipt Date: 20050408
  Transmission Date: 20051028
  Serious: Yes (Death)
  Sender: FDA-Public Use
  Company Number: SUS1-2005-00271

PATIENT
  Age: 17 Year
  Sex: Female
  Weight: 135.6 kg

DRUGS (2)
  1. ADDERALL XR 10 [Suspect]
     Indication: HYPERPHAGIA
     Dosage: 60 MG, 1X/DAY:QD
     Dates: start: 20031112, end: 20050323
  2. GLUCOPHAGE [Concomitant]

REACTIONS (10)
  - APATHY [None]
  - BLOOD PRESSURE INCREASED [None]
  - CARDIO-RESPIRATORY ARREST [None]
  - CARDIOMEGALY [None]
  - OFF LABEL USE [None]
  - PRESCRIBED OVERDOSE [None]
  - SUDDEN CARDIAC DEATH [None]
  - TREATMENT NONCOMPLIANCE [None]
  - VENTRICULAR HYPERTROPHY [None]
  - WEIGHT INCREASED [None]
